FAERS Safety Report 6452694-7 (Version None)
Quarter: 2009Q4

REPORT INFORMATION
  Report Type: 
  Country: None (occurrence: None)
  Receive Date: 20091124
  Receipt Date: 20091111
  Transmission Date: 20100525
  Serious: Yes (Death, Hospitalization)
  Sender: FDA-Public Use
  Company Number: JP-PFIZER INC-2009297836

PATIENT
  Age: 74 Year
  Sex: Female

DRUGS (2)
  1. ALDACTONE [Suspect]
     Dosage: UNK
     Dates: end: 20060101
  2. BUFFERIN [Suspect]
     Dosage: UNK
     Dates: end: 20060101

REACTIONS (4)
  - DISSEMINATED INTRAVASCULAR COAGULATION [None]
  - RESPIRATORY TRACT HAEMORRHAGE [None]
  - SEPSIS [None]
  - TOXIC EPIDERMAL NECROLYSIS [None]
